FAERS Safety Report 8825874 (Version 2)
Quarter: 2012Q4

REPORT INFORMATION
  Report Type: Report from Study
  Country: US (occurrence: US)
  Receive Date: 20121005
  Receipt Date: 20121026
  Transmission Date: 20130627
  Serious: Yes (Hospitalization, Other)
  Sender: FDA-Public Use
  Company Number: US-BRISTOL-MYERS SQUIBB COMPANY-17001025

PATIENT
  Age: 73 Year
  Sex: Male

DRUGS (2)
  1. IPILIMUMAB [Suspect]
     Indication: MALIGNANT MELANOMA
     Dosage: No of courses:2.
     Route: 042
     Dates: start: 20120803
  2. PREDNISONE [Suspect]

REACTIONS (2)
  - Diarrhoea [Recovering/Resolving]
  - Hyperglycaemia [Unknown]
